FAERS Safety Report 6539487-7 (Version None)
Quarter: 2010Q1

REPORT INFORMATION
  Report Type: 
  Country: None (occurrence: None)
  Receive Date: 20100115
  Receipt Date: 20100113
  Transmission Date: 20100710
  Serious: Yes (Other)
  Sender: FDA-Public Use
  Company Number: A0839199A

PATIENT
  Age: 34 Year
  Sex: Female

DRUGS (3)
  1. VERAMYST [Suspect]
     Dosage: 2SPR PER DAY
     Route: 045
     Dates: start: 20091001
  2. MULTI-VITAMIN [Concomitant]
  3. BENEFIBER [Concomitant]

REACTIONS (2)
  - EPISTAXIS [None]
  - THROMBOSIS [None]
